FAERS Safety Report 9567828 (Version 1)
Quarter: 2013Q3

REPORT INFORMATION
  Report Type: Spontaneous
  Country: US (occurrence: US)
  Receive Date: 20130930
  Receipt Date: 20130930
  Transmission Date: 20140515
  Serious: No
  Sender: FDA-Public Use
  Company Number: US-AMGEN-USASP2013016259

PATIENT
  Age: 52 Year
  Sex: Female
  Weight: 79 kg

DRUGS (7)
  1. ENBREL [Suspect]
     Indication: RHEUMATOID ARTHRITIS
     Dosage: 50 MG/ML, UNK
     Route: 048
  2. PLAQUENIL                          /00072602/ [Concomitant]
     Dosage: 200 MG, UNK
     Route: 048
  3. LEVOTHYROXIN [Concomitant]
     Dosage: 100 MUG, UNK
     Route: 048
  4. FOLGARD [Concomitant]
     Dosage: UNK
     Route: 048
  5. CALCIUM +D                         /00944201/ [Concomitant]
     Dosage: 500 UNK, UNK
     Route: 048
  6. MULTI                              /05812401/ [Concomitant]
     Dosage: UNK
     Route: 048
  7. METHOTREXATE [Concomitant]
     Dosage: 25 MG/ML, UNK
     Route: 058

REACTIONS (1)
  - Pharyngitis streptococcal [Unknown]
